FAERS Safety Report 16278499 (Version 1)
Quarter: 2019Q2

REPORT INFORMATION
  Report Type: Spontaneous
  Country: CN (occurrence: CN)
  Receive Date: 20190506
  Receipt Date: 20190506
  Transmission Date: 20190711
  Serious: Yes (Disabling)
  Sender: FDA-Public Use
  Company Number: CN-ASTRAZENECA-2019SE67256

PATIENT
  Age: 31141 Day
  Sex: Female
  Weight: 46.4 kg

DRUGS (4)
  1. MOSAPRIDE CITRATE [Suspect]
     Active Substance: MOSAPRIDE CITRATE
     Indication: GASTROINTESTINAL HAEMORRHAGE
     Route: 048
  2. SULPERAZONE [Suspect]
     Active Substance: CEFOPERAZONE SODIUM\SULBACTAM SODIUM
     Indication: GASTROINTESTINAL HAEMORRHAGE
     Dosage: PFIZER PHARMACEUTICALS (2G, TID, INTRAVENOUS DRIP)
     Route: 065
     Dates: start: 20190422, end: 20190423
  3. NEXIUM [Suspect]
     Active Substance: ESOMEPRAZOLE MAGNESIUM
     Indication: GASTROINTESTINAL HAEMORRHAGE
     Route: 041
     Dates: start: 20190421, end: 20190421
  4. RABEPRAZOLE SODIUM. [Suspect]
     Active Substance: RABEPRAZOLE SODIUM
     Dosage: NANJING CHANG AO PHARMACEUTICAL CO., LTD
     Route: 065
     Dates: start: 20190421, end: 20190422

REACTIONS (2)
  - Blood count abnormal [Not Recovered/Not Resolved]
  - Hepatic function abnormal [Not Recovered/Not Resolved]

NARRATIVE: CASE EVENT DATE: 20190422
